FAERS Safety Report 22147080 (Version 6)
Quarter: 2023Q2

REPORT INFORMATION
  Report Type: Report from Study
  Country: CN (occurrence: None)
  Receive Date: 20230328
  Receipt Date: 20230508
  Transmission Date: 20230721
  Serious: Yes (Death)
  Sender: FDA-Public Use
  Company Number: CN-Eisai Inc (Eisai China)-EC-2023-137193

PATIENT
  Age: 43 Year
  Sex: Male
  Weight: 70 kg

DRUGS (8)
  1. LENVATINIB [Suspect]
     Active Substance: LENVATINIB
     Indication: Squamous cell carcinoma of head and neck
     Route: 048
     Dates: start: 20221206, end: 20230321
  2. PEMBROLIZUMAB [Suspect]
     Active Substance: PEMBROLIZUMAB
     Indication: Squamous cell carcinoma of head and neck
     Route: 041
     Dates: start: 20221206, end: 20230316
  3. ALBUTEROL SULFATE [Concomitant]
     Active Substance: ALBUTEROL SULFATE
     Dates: start: 202203
  4. FU FANG KE DAI YIN [Concomitant]
     Dates: start: 20221201
  5. YUN NAN BAI YAO [ACONITUM KUSNEZOFFII ROOT;HERBAL NOS] [Concomitant]
     Dates: start: 20221214
  6. LEVOTHYROXINE SODIUM [Concomitant]
     Active Substance: LEVOTHYROXINE SODIUM
     Dates: start: 20230130
  7. VALSARTAN [Concomitant]
     Active Substance: VALSARTAN
     Dates: start: 20230212
  8. ALPRAZOLAM [Concomitant]
     Active Substance: ALPRAZOLAM
     Dates: start: 20230222

REACTIONS (1)
  - Haemorrhage [Fatal]

NARRATIVE: CASE EVENT DATE: 20230322
